FAERS Safety Report 5731342-5 (Version None)
Quarter: 2008Q2

REPORT INFORMATION
  Report Type: 
  Country: None (occurrence: None)
  Receive Date: 20080508
  Receipt Date: 20080430
  Transmission Date: 20081010
  Serious: Yes (Life-Threatening, Hospitalization, Other)
  Sender: FDA-Public Use
  Company Number: GB-RANBAXY-2008RR-13558

PATIENT

DRUGS (1)
  1. ACETAMINOPHEN [Suspect]
     Indication: DRUG USE FOR UNKNOWN INDICATION
     Dosage: 16-62 G
     Route: 048

REACTIONS (5)
  - ACUTE HEPATIC FAILURE [None]
  - HEPATECTOMY [None]
  - HEPATIC ARTERY THROMBOSIS [None]
  - OVERDOSE [None]
  - SEPSIS [None]
